FAERS Safety Report 9894781 (Version 3)
Quarter: 2014Q1

REPORT INFORMATION
  Report Type: Report from Study
  Country: US (occurrence: US)
  Receive Date: 20140213
  Receipt Date: 20140225
  Transmission Date: 20141002
  Serious: Yes (Hospitalization)
  Sender: FDA-Public Use
  Company Number: US-ACTELION-A-US2013-90214

PATIENT
  Age: 19 Month
  Sex: Female

DRUGS (5)
  1. VELETRI [Suspect]
     Indication: PULMONARY ARTERIAL HYPERTENSION
     Dosage: 37 NG/KG/MIN
     Route: 041
  2. VELETRI [Suspect]
     Dosage: 34 NG/KG, PER MIN
     Route: 042
     Dates: start: 20130426
  3. SILDENAFIL [Concomitant]
  4. FLOLAN [Concomitant]
  5. MVI [Concomitant]

REACTIONS (12)
  - Bacteraemia [Unknown]
  - Staphylococcal infection [Unknown]
  - Catheter site infection [Unknown]
  - Pyrexia [Unknown]
  - Rash [Unknown]
  - Catheter site erythema [Recovered/Resolved]
  - Chemical burn of skin [Unknown]
  - Catheter site swelling [Recovered/Resolved]
  - Catheter site discharge [Recovered/Resolved]
  - Blood culture negative [Recovered/Resolved]
  - Culture positive [Unknown]
  - Sepsis [Unknown]
